FAERS Safety Report 7969559-1 (Version None)
Quarter: 2011Q4

REPORT INFORMATION
  Report Type: 
  Country: None (occurrence: None)
  Receive Date: 20111212
  Receipt Date: 20100824
  Transmission Date: 20120403
  Serious: Yes (Other)
  Sender: FDA-Public Use
  Company Number: US-BAYER-201018304NA

PATIENT
  Sex: Male
  Weight: 73 kg

DRUGS (5)
  1. MULTIHANCE [Suspect]
     Indication: NUCLEAR MAGNETIC RESONANCE IMAGING BRAIN
     Dosage: 16 ML, ONCE
     Dates: start: 20040614, end: 20040614
  2. MAGNEVIST [Suspect]
  3. OMNISCAN [Suspect]
     Indication: IMAGING PROCEDURE
     Dosage: UNK
  4. MULTIHANCE [Suspect]
     Indication: IMAGING PROCEDURE
  5. OMNISCAN [Suspect]
     Indication: NUCLEAR MAGNETIC RESONANCE IMAGING BRAIN
     Dosage: UNK
     Dates: start: 20070411, end: 20070411

REACTIONS (14)
  - JOINT CONTRACTURE [None]
  - GENERAL PHYSICAL HEALTH DETERIORATION [None]
  - SKIN INDURATION [None]
  - PAIN [None]
  - DEFORMITY [None]
  - PAIN IN EXTREMITY [None]
  - NEPHROGENIC SYSTEMIC FIBROSIS [None]
  - FIBROSIS [None]
  - JOINT STIFFNESS [None]
  - GAIT DISTURBANCE [None]
  - SKIN FIBROSIS [None]
  - EXTREMITY CONTRACTURE [None]
  - OEDEMA PERIPHERAL [None]
  - MUSCULAR WEAKNESS [None]
